FAERS Safety Report 21425695 (Version 1)
Quarter: 2022Q4

REPORT INFORMATION
  Report Type: Spontaneous
  Country: DE (occurrence: None)
  Receive Date: 20221008
  Receipt Date: 20221008
  Transmission Date: 20230113
  Serious: Yes (Life-Threatening)
  Sender: FDA-Public Use
  Company Number: DE-MICRO LABS LIMITED-ML2022-04960

PATIENT
  Age: 80 Year
  Sex: Male

DRUGS (4)
  1. TRANEXAMIC ACID [Suspect]
     Active Substance: TRANEXAMIC ACID
     Route: 042
  2. HUMAN IMMUNOGLOBULIN G [Suspect]
     Active Substance: HUMAN IMMUNOGLOBULIN G
     Dosage: 1G/KG BODY WEIGHT/DAY, 2 DAYS
     Route: 042
  3. PREDNISOLONE [Suspect]
     Active Substance: PREDNISOLONE
  4. RITUXIMAB [Suspect]
     Active Substance: RITUXIMAB

REACTIONS (1)
  - Drug ineffective [Unknown]
